FAERS Safety Report 23689191 (Version 2)
Quarter: 2024Q2

REPORT INFORMATION
  Report Type: Spontaneous
  Country: US (occurrence: US)
  Receive Date: 20240330
  Receipt Date: 20240405
  Transmission Date: 20240716
  Serious: Yes (Other)
  Sender: FDA-Public Use
  Company Number: US-JNJFOC-20240363680

PATIENT
  Age: 65 Year
  Sex: Male

DRUGS (2)
  1. JANSSEN COVID-19 VACCINE [Suspect]
     Active Substance: AD26.COV2.S
     Indication: COVID-19 prophylaxis
     Dosage: DOSE IN SERIES 1
     Route: 030
  2. DARZALEX [Suspect]
     Active Substance: DARATUMUMAB
     Indication: Plasma cell myeloma
     Route: 065
     Dates: start: 2021

REACTIONS (4)
  - Drug ineffective [Unknown]
  - Cardiomegaly [Recovered/Resolved]
  - Back pain [Not Recovered/Not Resolved]
  - Blood test abnormal [Unknown]
